FAERS Safety Report 8885306 (Version 1)
Quarter: 2012Q4

REPORT INFORMATION
  Report Type: 
  Country: IT (occurrence: IT)
  Receive Date: 20121105
  Receipt Date: 20121105
  Transmission Date: 20130627
  Serious: Yes (Other)
  Sender: FDA-Public Use
  Company Number: IT-JNJFOC-20121013088

PATIENT
  Age: 14 Year
  Sex: Male

DRUGS (1)
  1. HALDOL [Suspect]
     Indication: PRODUCT USED FOR UNKNOWN INDICATION
     Route: 048
     Dates: start: 20121021, end: 20121021

REACTIONS (3)
  - Drug abuse [Unknown]
  - Hypertonia [Unknown]
  - Trismus [Unknown]
